FAERS Safety Report 15169536 (Version 1)
Quarter: 2018Q3

REPORT INFORMATION
  Report Type: Spontaneous
  Country: NL (occurrence: NL)
  Receive Date: 20180720
  Receipt Date: 20180720
  Transmission Date: 20181010
  Serious: Yes (Other)
  Sender: FDA-Public Use
  Company Number: NL-ASTRAZENECA-2018SE90361

PATIENT
  Age: 45 Year
  Sex: Male
  Weight: 90 kg

DRUGS (7)
  1. TICAGRELOR. [Suspect]
     Active Substance: TICAGRELOR
     Indication: ACUTE CORONARY SYNDROME
     Route: 048
     Dates: start: 201712, end: 201803
  2. ROSUVASTATIN. [Concomitant]
     Active Substance: ROSUVASTATIN
  3. HYDROCHLOROTHIAZIDE. [Concomitant]
     Active Substance: HYDROCHLOROTHIAZIDE
  4. PANTOPRAZOLE [Concomitant]
     Active Substance: PANTOPRAZOLE
  5. ACETYLSALICYLZUUR [Concomitant]
     Active Substance: ASPIRIN
  6. METOPROLOL. [Concomitant]
     Active Substance: METOPROLOL
  7. PERINDOPRIL [Concomitant]
     Active Substance: PERINDOPRIL

REACTIONS (2)
  - Pulmonary oedema [Recovered/Resolved]
  - Generalised oedema [Recovered/Resolved]

NARRATIVE: CASE EVENT DATE: 201803
